FAERS Safety Report 11700209 (Version 13)
Quarter: 2021Q1

REPORT INFORMATION
  Report Type: Spontaneous
  Country: US (occurrence: US)
  Receive Date: 20151105
  Receipt Date: 20210204
  Transmission Date: 20210419
  Serious: Yes (Hospitalization)
  Sender: FDA-Public Use
  Company Number: US-PFIZER INC-2015348912

PATIENT
  Age: 73 Year
  Sex: Female

DRUGS (4)
  1. LETROZOLE. [Suspect]
     Active Substance: LETROZOLE
     Indication: BREAST CANCER FEMALE
     Dosage: 2.5 MG, 1X/DAY
     Dates: start: 20150601
  2. IBRANCE [Suspect]
     Active Substance: PALBOCICLIB
     Dosage: 129 MG, UNK
  3. HUMALOG MIX [Concomitant]
     Active Substance: INSULIN LISPRO
     Dosage: UNK (STRENGTH: 75/25)
  4. IBRANCE [Suspect]
     Active Substance: PALBOCICLIB
     Indication: BREAST CANCER FEMALE
     Dosage: 125 MG (1 CAPSULE), ONCE DAILY
     Route: 048
     Dates: start: 20150601

REACTIONS (7)
  - Rash [Recovered/Resolved]
  - Cystitis [Unknown]
  - Weight increased [Not Recovered/Not Resolved]
  - Tooth disorder [Unknown]
  - Product prescribing error [Unknown]
  - Alopecia [Not Recovered/Not Resolved]
  - Toothache [Unknown]
